FAERS Safety Report 14458458 (Version 4)
Quarter: 2018Q3

REPORT INFORMATION
  Report Type: Spontaneous
  Country: US (occurrence: US)
  Receive Date: 20180130
  Receipt Date: 20180704
  Transmission Date: 20181010
  Serious: No
  Sender: FDA-Public Use
  Company Number: US-PFIZER INC-2017473415

PATIENT
  Age: 24 Year
  Sex: Female

DRUGS (5)
  1. DOCETAXEL. [Suspect]
     Active Substance: DOCETAXEL
     Indication: INVASIVE DUCTAL BREAST CARCINOMA
  2. HERCEPTIN [Concomitant]
     Active Substance: TRASTUZUMAB
     Dosage: UNK
  3. PARAPLATIN [Concomitant]
     Active Substance: CARBOPLATIN
     Indication: CHEMOTHERAPY
     Dosage: UNK
  4. DOCETAXEL. [Suspect]
     Active Substance: DOCETAXEL
     Indication: CHEMOTHERAPY
     Dosage: 118 MG, EVERY 3 WEEKS (06 CYCLES)
     Dates: start: 20120330, end: 20120712
  5. CARBOPLATIN. [Concomitant]
     Active Substance: CARBOPLATIN
     Dosage: UNK

REACTIONS (7)
  - Madarosis [Unknown]
  - Hair texture abnormal [Unknown]
  - Hair disorder [Unknown]
  - Depression [Unknown]
  - Hair colour changes [Unknown]
  - Alopecia [Unknown]
  - Anxiety [Unknown]

NARRATIVE: CASE EVENT DATE: 2012
